FAERS Safety Report 23902180 (Version 1)
Quarter: 2024Q2

REPORT INFORMATION
  Report Type: Spontaneous
  Country: US (occurrence: None)
  Receive Date: 20240527
  Receipt Date: 20240527
  Transmission Date: 20240715
  Serious: No
  Sender: FDA-Public Use
  Company Number: US-ROCHE-3510036

PATIENT
  Age: 64 Year
  Sex: Female
  Weight: 67.192 kg

DRUGS (10)
  1. ACTEMRA [Suspect]
     Active Substance: TOCILIZUMAB
     Indication: Rheumatoid arthritis
     Dosage: 0.9 ML PER DOSE EVERY FRIDAY
     Route: 058
     Dates: start: 2023
  2. ACTEMRA [Suspect]
     Active Substance: TOCILIZUMAB
  3. ACTEMRA [Suspect]
     Active Substance: TOCILIZUMAB
     Indication: Rheumatoid arthritis
     Dosage: 0.9 ML PER DOSE EVERY FRIDAY
     Route: 058
     Dates: start: 20230825, end: 2023
  4. ACTEMRA [Suspect]
     Active Substance: TOCILIZUMAB
  5. ACTEMRA [Suspect]
     Active Substance: TOCILIZUMAB
  6. HYDROXYZINE HYDROCHLORIDE [Concomitant]
     Active Substance: HYDROXYZINE HYDROCHLORIDE
     Indication: Upper-airway cough syndrome
     Route: 048
  7. HYDROXYZINE HYDROCHLORIDE [Concomitant]
     Active Substance: HYDROXYZINE HYDROCHLORIDE
     Indication: Pruritus
  8. METHOTREXATE [Concomitant]
     Active Substance: METHOTREXATE
     Indication: Rheumatoid arthritis
     Dosage: SIX 2.5 MG TABLETS PER DOSE
     Route: 048
     Dates: start: 202304, end: 20240211
  9. METHOTREXATE [Concomitant]
     Active Substance: METHOTREXATE
     Dosage: FIVE 2.5 MG TABLETS PER DOSE
     Route: 048
     Dates: start: 20240211
  10. PREDNISONE [Concomitant]
     Active Substance: PREDNISONE
     Indication: Rheumatoid arthritis
     Route: 048

REACTIONS (6)
  - Device issue [Unknown]
  - Drug delivery system malfunction [Unknown]
  - Device defective [Unknown]
  - Syringe issue [Unknown]
  - Wrong technique in product usage process [Unknown]
  - Tendon injury [Unknown]

NARRATIVE: CASE EVENT DATE: 20230101
